FAERS Safety Report 6909897-4 (Version None)
Quarter: 2010Q3

REPORT INFORMATION
  Report Type: 
  Country: None (occurrence: None)
  Receive Date: 20100806
  Receipt Date: 20100729
  Transmission Date: 20110219
  Serious: No
  Sender: FDA-Public Use
  Company Number: US-BIOGENIDEC-2010BI026462

PATIENT
  Age: 70 Year
  Sex: Female

DRUGS (4)
  1. TYSABRI [Suspect]
     Indication: MULTIPLE SCLEROSIS
     Route: 042
     Dates: start: 20050203
  2. TYSABRI [Suspect]
     Route: 042
     Dates: start: 20061016, end: 20090206
  3. TYSABRI [Suspect]
     Route: 042
     Dates: start: 20091112
  4. AVONEX [Concomitant]
     Indication: MULTIPLE SCLEROSIS
     Route: 030
     Dates: start: 20050610, end: 20061220

REACTIONS (2)
  - FATIGUE [None]
  - MOBILITY DECREASED [None]
